FAERS Safety Report 9230706 (Version 2)
Quarter: 2013Q2

REPORT INFORMATION
  Report Type: Spontaneous
  Country: JP (occurrence: JP)
  Receive Date: 20130415
  Receipt Date: 20130415
  Transmission Date: 20140414
  Serious: Yes (Hospitalization)
  Sender: FDA-Public Use
  Company Number: JP-NOVOPROD-367114

PATIENT
  Age: 78 Year
  Sex: Female
  Weight: 60 kg

DRUGS (17)
  1. LEVEMIR CHU FLEXPEN [Suspect]
     Indication: TYPE 2 DIABETES MELLITUS
     Dosage: 26 IU, QD
     Route: 058
     Dates: start: 200807, end: 201205
  2. NOVORAPID [Suspect]
     Indication: TYPE 2 DIABETES MELLITUS
     Dosage: 30 IU, QD
     Route: 058
     Dates: start: 200807
  3. NOVOLIN N [Suspect]
     Indication: TYPE 2 DIABETES MELLITUS
     Dosage: 24 U, QD
     Route: 058
     Dates: start: 2001, end: 200807
  4. NOVOLIN N [Suspect]
     Dosage: UNK
     Dates: start: 201206, end: 201206
  5. NOVOLIN R [Suspect]
     Indication: TYPE 2 DIABETES MELLITUS
     Dosage: 42 U, QD
     Route: 058
     Dates: start: 2001, end: 2002
  6. BAYASPIRIN [Concomitant]
     Indication: CEREBRAL INFARCTION
     Dosage: 100 MG, QD
     Route: 048
  7. LASIX                              /00032601/ [Concomitant]
     Indication: HYPERTENSION
     Dosage: 10 MG, QD
     Route: 048
  8. PURSENNID /00142207/ [Concomitant]
     Indication: CONSTIPATION
     Dosage: 36 MG, QD
     Route: 048
  9. ATELEC [Concomitant]
     Indication: CEREBRAL INFARCTION
     Route: 048
  10. CARDENALIN [Concomitant]
     Indication: CEREBRAL INFARCTION
     Dosage: 4 MG, QD
     Route: 048
  11. DIOVAN [Concomitant]
     Indication: HYPERTENSION
     Dosage: 160 MG, QD
     Route: 048
  12. PRERAN [Concomitant]
     Indication: HYPERTENSION
     Dosage: 1 MG, QD
     Route: 048
  13. KINEDAK [Concomitant]
     Indication: DIABETIC NEUROPATHY
     Dosage: 150 MG, QD
     Route: 048
  14. ALDACTONE A [Concomitant]
     Indication: HYPERTENSION
     Dosage: 25 MG, QD
     Route: 048
  15. SELBEX [Concomitant]
     Indication: GASTRIC ULCER
     Dosage: 100 MG, QD
     Route: 048
  16. CELECOX [Concomitant]
     Indication: GASTRIC ULCER
     Dosage: 400 MG, QD
     Route: 048
  17. DEPAS [Concomitant]
     Indication: INSOMNIA
     Dosage: 0.5 MG, QD
     Route: 048

REACTIONS (3)
  - Anti-insulin antibody positive [Not Recovered/Not Resolved]
  - Diabetes mellitus inadequate control [Not Recovered/Not Resolved]
  - Injection site hypersensitivity [Recovering/Resolving]
